FAERS Safety Report 23848637 (Version 1)
Quarter: 2024Q2

REPORT INFORMATION
  Report Type: Spontaneous
  Country: US (occurrence: US)
  Receive Date: 20240513
  Receipt Date: 20240513
  Transmission Date: 20240716
  Serious: No
  Sender: FDA-Public Use
  Company Number: US-PERRIGO-23US013686

PATIENT
  Age: 73 Year
  Sex: Female
  Weight: 45.351 kg

DRUGS (2)
  1. MICONAZOLE 3 COMBINATION PACK [Suspect]
     Active Substance: MICONAZOLE NITRATE
     Indication: Vulvovaginal mycotic infection
     Dosage: SMALL AMOUNT, SINGLE
     Route: 061
     Dates: start: 20231128, end: 20231128
  2. MICONAZOLE 3 COMBINATION PACK [Suspect]
     Active Substance: MICONAZOLE NITRATE
     Indication: Vulvovaginal mycotic infection
     Dosage: 200 MG, SINGLE
     Route: 067
     Dates: start: 20231128, end: 20231128

REACTIONS (4)
  - Hypoaesthesia [Recovering/Resolving]
  - Gait disturbance [Recovered/Resolved]
  - Pain in extremity [Not Recovered/Not Resolved]
  - Arthralgia [Not Recovered/Not Resolved]

NARRATIVE: CASE EVENT DATE: 20231129
